FAERS Safety Report 13476720 (Version 1)
Quarter: 2017Q2

REPORT INFORMATION
  Report Type: Spontaneous
  Country: US (occurrence: US)
  Receive Date: 20170425
  Receipt Date: 20170425
  Transmission Date: 20170830
  Serious: Yes (Hospitalization)
  Sender: FDA-Public Use
  Company Number: US-PFIZER INC-2017149478

PATIENT
  Age: 68 Year
  Sex: Male

DRUGS (19)
  1. VFEND [Suspect]
     Active Substance: VORICONAZOLE
     Indication: FUNGAL INFECTION
  2. CHOLECALCIFEROL [Concomitant]
     Active Substance: CHOLECALCIFEROL
     Dosage: 1000 IU, UNK
  3. LEVOFLOXACIN. [Concomitant]
     Active Substance: LEVOFLOXACIN
     Dosage: UNK
     Dates: start: 201606
  4. VFEND [Suspect]
     Active Substance: VORICONAZOLE
     Indication: NEUTROPENIA
  5. OMEPRAZOLE. [Concomitant]
     Active Substance: OMEPRAZOLE
     Dosage: UNK
  6. ROPINIROLE. [Concomitant]
     Active Substance: ROPINIROLE
     Dosage: UNK (0.25 GAS)
  7. VFEND [Suspect]
     Active Substance: VORICONAZOLE
     Indication: NEUTROPENIC INFECTION
     Dosage: 300 MG, 2X/DAY (200 MG TWICE A DAY, TWO 50 MG TABLETS TWICE A DAY FOR A TOTAL OF 300 MG TWICE A DAY)
     Route: 048
     Dates: start: 201607
  8. CLONAZEPAM. [Concomitant]
     Active Substance: CLONAZEPAM
     Dosage: UNK
  9. DACOGEN [Concomitant]
     Active Substance: DECITABINE
     Dosage: UNK (OUT-PT 5 DAYS/WK EVERY 5TH WEEK) FOR THE LAST 1/2 MONTH
     Route: 042
     Dates: start: 201606
  10. ACYCLOVIR /00587301/ [Concomitant]
     Active Substance: ACYCLOVIR
     Indication: ANTIVIRAL TREATMENT
     Dosage: 400 MG, 2X/DAY
     Dates: start: 201606
  11. CALCIUM + VITAMIN D3 [Concomitant]
     Active Substance: CALCIUM CARBONATE\CHOLECALCIFEROL
     Dosage: UNK
  12. ESCITALOPRAM [Concomitant]
     Active Substance: ESCITALOPRAM OXALATE
     Dosage: UNK
  13. HYOSCYAMINE. [Concomitant]
     Active Substance: HYOSCYAMINE
     Dosage: UNK
  14. FLOMAX [Concomitant]
     Active Substance: TAMSULOSIN HYDROCHLORIDE
     Indication: POLYURIA
     Dosage: UNK, DAILY
  15. DICLOFENAC [Concomitant]
     Active Substance: DICLOFENAC
     Dosage: UNK
  16. ONDANSETRON [Concomitant]
     Active Substance: ONDANSETRON
     Dosage: UNK
     Dates: start: 201608
  17. TAMSULOSIN [Concomitant]
     Active Substance: TAMSULOSIN
     Dosage: UNK
     Dates: start: 201609
  18. DECITABINE. [Concomitant]
     Active Substance: DECITABINE
     Dosage: UNK
     Dates: start: 201606
  19. LEVAQUIN [Concomitant]
     Active Substance: LEVOFLOXACIN
     Indication: ANTIBIOTIC THERAPY
     Dosage: 500 MG, 1X/DAY
     Dates: start: 201606

REACTIONS (5)
  - Contusion [Not Recovered/Not Resolved]
  - Body temperature abnormal [Recovered/Resolved]
  - Cerebral haemorrhage [Recovered/Resolved]
  - Product use in unapproved indication [Unknown]
  - Fall [Recovered/Resolved]

NARRATIVE: CASE EVENT DATE: 201607
